FAERS Safety Report 7429626-8 (Version None)
Quarter: 2011Q2

REPORT INFORMATION
  Report Type: 
  Country: None (occurrence: None)
  Receive Date: 20110421
  Receipt Date: 20110415
  Transmission Date: 20111010
  Serious: Yes (Other)
  Sender: FDA-Public Use
  Company Number: B0714197A

PATIENT

DRUGS (1)
  1. LAMICTAL [Suspect]
     Dosage: 44IUAX PER DAY
     Route: 048
     Dates: start: 20110415, end: 20110415

REACTIONS (2)
  - OVERDOSE [None]
  - DRUG ABUSE [None]
